FAERS Safety Report 7216239-6 (Version None)
Quarter: 2011Q1

REPORT INFORMATION
  Report Type: 
  Country: None (occurrence: None)
  Receive Date: 20110107
  Receipt Date: 20110104
  Transmission Date: 20110831
  Serious: Yes (Hospitalization, Other)
  Sender: FDA-Public Use
  Company Number: GB-BAXTER-2011BH000214

PATIENT
  Age: 83 Year
  Sex: Male

DRUGS (8)
  1. ASPIRIN [Concomitant]
     Indication: BLOOD PRESSURE MANAGEMENT
     Route: 065
  2. EXTRANEAL [Suspect]
     Indication: OFF LABEL USE
     Route: 033
     Dates: end: 20101230
  3. RANITIL [Concomitant]
     Indication: BLOOD PRESSURE MANAGEMENT
     Route: 065
  4. ACTONEL [Concomitant]
     Indication: OSTEITIS DEFORMANS
     Route: 065
  5. DOXAZOSIN [Concomitant]
     Indication: BLOOD PRESSURE MANAGEMENT
     Route: 065
  6. EXTRANEAL [Suspect]
     Indication: CARDIAC FAILURE
     Route: 033
     Dates: end: 20101230
  7. BUMETANIDE [Concomitant]
     Indication: POLYURIA
     Route: 065
  8. ALLOPURINOL [Concomitant]
     Indication: GOUT
     Route: 065

REACTIONS (4)
  - DEHYDRATION [None]
  - DIARRHOEA [None]
  - HYPOTENSION [None]
  - PERITONITIS [None]
